FAERS Safety Report 4447768-6 (Version None)
Quarter: 2004Q3

REPORT INFORMATION
  Report Type: 
  Country: None (occurrence: None)
  Receive Date: 20040913
  Receipt Date: 20040902
  Transmission Date: 20050211
  Serious: Yes (Death, Hospitalization)
  Sender: FDA-Public Use
  Company Number: 200418770GDDC

PATIENT
  Age: 89 Year
  Sex: Male

DRUGS (16)
  1. PLENDIL [Suspect]
     Indication: HYPERTONIA
     Route: 048
     Dates: start: 20040326, end: 20040413
  2. TRIATEC [Suspect]
     Indication: CARDIAC FAILURE
     Dosage: DOSE: 1 DF
     Route: 048
     Dates: start: 20040402, end: 20040413
  3. KLEXANE [Suspect]
     Indication: PROPHYLAXIS
     Route: 058
     Dates: start: 20040326
  4. ATENOLOL [Suspect]
     Indication: ANGINA PECTORIS
     Route: 048
     Dates: start: 19990101
  5. ATENOLOL [Suspect]
     Indication: HYPERTONIA
     Route: 048
     Dates: start: 19990101
  6. LANSOPRAZOLE [Suspect]
     Indication: PROPHYLAXIS
     Dosage: DOSE: UNK
     Dates: start: 20030402
  7. TROMBYL [Suspect]
     Indication: PROPHYLAXIS
     Route: 048
     Dates: start: 20040326, end: 20040413
  8. PLAVIX [Suspect]
     Indication: PROPHYLAXIS
     Route: 048
     Dates: start: 20040326, end: 20040413
  9. ALVEDON [Concomitant]
     Dosage: DOSE: UNK
     Route: 048
  10. SIMVASTATIN [Concomitant]
     Dosage: DOSE: UNK
  11. WARAN [Concomitant]
     Dosage: DOSE: UNK
  12. NITROMEX [Concomitant]
     Dosage: DOSE: UNK
  13. SPIRONOLACTONE [Concomitant]
     Dosage: DOSE: UNK
  14. DEXOFEN ^ASTRA^ [Concomitant]
     Dosage: DOSE: UNK
  15. FUROSEMIDE [Concomitant]
     Dosage: DOSE: UNK
  16. IMDUR [Concomitant]
     Dosage: DOSE: UNK

REACTIONS (16)
  - ANOREXIA [None]
  - ASTHENIA [None]
  - BLOOD CREATININE INCREASED [None]
  - BLOOD PRESSURE DECREASED [None]
  - BRADYCARDIA [None]
  - C-REACTIVE PROTEIN INCREASED [None]
  - CARDIAC FAILURE [None]
  - DRUG ERUPTION [None]
  - GENERAL PHYSICAL HEALTH DETERIORATION [None]
  - HAEMOGLOBIN DECREASED [None]
  - MARKEDLY REDUCED DIETARY INTAKE [None]
  - MYOCARDIAL INFARCTION [None]
  - NEUROLOGICAL SYMPTOM [None]
  - PYREXIA [None]
  - SEBORRHOEIC DERMATITIS [None]
  - VENTRICULAR DYSFUNCTION [None]
